FAERS Safety Report 22238886 (Version 1)
Quarter: 2023Q2

REPORT INFORMATION
  Report Type: Spontaneous
  Country: AU (occurrence: AU)
  Receive Date: 20230421
  Receipt Date: 20230421
  Transmission Date: 20230721
  Serious: Yes (Hospitalization, Other)
  Sender: FDA-Public Use
  Company Number: AU-LUNDBECK-DKLU3060857

PATIENT
  Age: 53 Year
  Sex: Male

DRUGS (2)
  1. ABILIFY MAINTENA [Suspect]
     Active Substance: ARIPIPRAZOLE
     Indication: Product used for unknown indication
     Dosage: 400 MG
     Route: 065
     Dates: start: 20201201, end: 20221027
  2. ABILIFY MAINTENA [Suspect]
     Active Substance: ARIPIPRAZOLE
     Dosage: 300 MG
     Route: 065
     Dates: start: 202106

REACTIONS (16)
  - Balance disorder [Unknown]
  - Staphylococcal infection [Unknown]
  - Atrial fibrillation [Not Recovered/Not Resolved]
  - Cellulitis [Not Recovered/Not Resolved]
  - Swollen tongue [Unknown]
  - Lethargy [Unknown]
  - Increased appetite [Unknown]
  - Chest pain [Unknown]
  - Tardive dyskinesia [Unknown]
  - Hyperhidrosis [Unknown]
  - Weight increased [Not Recovered/Not Resolved]
  - Constipation [Unknown]
  - Diarrhoea [Unknown]
  - Dizziness [Unknown]
  - Fatigue [Unknown]
  - Vision blurred [Unknown]

NARRATIVE: CASE EVENT DATE: 20220801
